FAERS Safety Report 9784598 (Version 2)
Quarter: 2014Q1

REPORT INFORMATION
  Report Type: Report from Study
  Country: US (occurrence: US)
  Receive Date: 20131226
  Receipt Date: 20140106
  Transmission Date: 20141002
  Serious: Yes (Hospitalization)
  Sender: FDA-Public Use
  Company Number: US-ABBVIE-13P-163-1181134-00

PATIENT
  Sex: Female
  Weight: 61.29 kg

DRUGS (4)
  1. HUMIRA [Suspect]
     Indication: CROHN^S DISEASE
     Dosage: ONE-TIME DOSE
     Route: 058
     Dates: start: 20131127, end: 20131127
  2. HUMIRA [Suspect]
     Dosage: ONE-TIME DOSE
     Route: 058
     Dates: start: 20131211, end: 20131211
  3. HUMIRA [Suspect]
     Route: 058
     Dates: start: 20131225
  4. IMURAN [Concomitant]
     Indication: CROHN^S DISEASE

REACTIONS (3)
  - Chills [Recovered/Resolved]
  - Pyrexia [Recovered/Resolved]
  - Viral infection [Recovered/Resolved]
